FAERS Safety Report 17728630 (Version 1)
Quarter: 2020Q2

REPORT INFORMATION
  Report Type: Report from Study
  Country: TH (occurrence: TH)
  Receive Date: 20200430
  Receipt Date: 20200430
  Transmission Date: 20200714
  Serious: Yes (Hospitalization)
  Sender: FDA-Public Use
  Company Number: TH-BAYER-2020-068092

PATIENT
  Age: 63 Year
  Sex: Female

DRUGS (1)
  1. STIVARGA [Suspect]
     Active Substance: REGORAFENIB
     Indication: COLORECTAL CANCER
     Dosage: DAILY DOSE 120 MG
     Dates: start: 20200324, end: 20200402

REACTIONS (3)
  - Enterocolitis infectious [None]
  - Intestinal perforation [None]
  - Gastrointestinal inflammation [None]

NARRATIVE: CASE EVENT DATE: 20200402
